FAERS Safety Report 18071098 (Version 1)
Quarter: 2020Q3

REPORT INFORMATION
  Report Type: Spontaneous
  Country: US (occurrence: US)
  Receive Date: 20200725
  Receipt Date: 20200725
  Transmission Date: 20201103
  Serious: Yes (Other)
  Sender: FDA-Public Use
  Company Number: None

PATIENT
  Age: 35 Year
  Sex: Female
  Weight: 124.7 kg

DRUGS (16)
  1. REMDESIVIR. [Suspect]
     Active Substance: REMDESIVIR
     Indication: COVID-19
     Dosage: ?          OTHER FREQUENCY:ONCE AS LD.;?
     Route: 042
     Dates: start: 20200723, end: 20200724
  2. FAMOTIDINE 20 MG PO BID [Concomitant]
     Dates: start: 20200721
  3. ZINC SULFATE 220 MG PO DAILY [Concomitant]
     Dates: start: 20200719
  4. LABETALOL 100 MG PO BID [Concomitant]
     Dates: start: 20200719
  5. CLOZAPINE 100 MG PO BID [Concomitant]
     Dates: start: 20200719
  6. ROBITUSSIN AC 10 ML PO Q8H PRN COUGH [Concomitant]
     Dates: start: 20200718
  7. ACETAMINOPHEN 650 MG PO Q6H PRN [Concomitant]
     Dates: start: 20200719
  8. DEXAMETHASONE 6 MG IV BID [Concomitant]
     Dates: start: 20200721
  9. LISINOPRIL 10 MG PO DAILY [Concomitant]
     Dates: start: 20200719
  10. ALBUTEROL 2 PUFF Q4H [Concomitant]
     Dates: start: 20200718
  11. SPIRONOLACTONE 25 MG PO DAILY [Concomitant]
     Dates: start: 20200719
  12. THIAMINE MONONITRATE 100 MG PO DAILY [Concomitant]
     Dates: start: 20200719
  13. ASCORBIC ACID 1000 MG PO DAILY [Concomitant]
     Dates: start: 20200719
  14. ENOXAPARIN 40 MG SC BID [Concomitant]
     Dates: start: 20200719
  15. DULOXETINE 30 MG PO DAILY [Concomitant]
     Dates: start: 20200719
  16. TOPIRAMATE 100 MG PO BEDTIME [Concomitant]
     Dates: start: 20200719

REACTIONS (1)
  - Alanine aminotransferase increased [None]

NARRATIVE: CASE EVENT DATE: 20200724
